FAERS Safety Report 5741811-X (Version None)
Quarter: 2008Q2

REPORT INFORMATION
  Report Type: 
  Country: None (occurrence: None)
  Receive Date: 20080519
  Receipt Date: 20071120
  Transmission Date: 20081010
  Serious: No
  Sender: FDA-Public Use
  Company Number: US-BAYER-200715208NA

PATIENT
  Sex: Female

DRUGS (1)
  1. MIRENA [Suspect]
     Indication: DRUG USE FOR UNKNOWN INDICATION
     Route: 015
     Dates: start: 20071001

REACTIONS (9)
  - ABDOMINAL PAIN LOWER [None]
  - ACNE [None]
  - DEPRESSED MOOD [None]
  - DEPRESSION [None]
  - GENITAL HAEMORRHAGE [None]
  - HEADACHE [None]
  - MOOD ALTERED [None]
  - NAUSEA [None]
  - VOMITING [None]
